FAERS Safety Report 21014874 (Version 2)
Quarter: 2022Q3

REPORT INFORMATION
  Report Type: Spontaneous
  Country: US (occurrence: US)
  Receive Date: 20220628
  Receipt Date: 20220902
  Transmission Date: 20221026
  Serious: Yes (Other)
  Sender: FDA-Public Use
  Company Number: US-NOVARTISPH-NVSC2022US143925

PATIENT
  Age: 1 Year
  Sex: Male

DRUGS (5)
  1. FILGRASTIM [Suspect]
     Active Substance: FILGRASTIM
     Indication: Acute myeloid leukaemia refractory
     Dosage: 5 MICROGRAM PER KG PER DOSE DAY 5 UNTIL NEUTROPHIL RECOVERY
     Route: 065
  2. FLUDARABINE PHOSPHATE [Suspect]
     Active Substance: FLUDARABINE PHOSPHATE
     Indication: Acute myeloid leukaemia refractory
     Dosage: 30 MG/M2 (DAYS 6 TO 10)
     Route: 065
  3. DECITABINE [Suspect]
     Active Substance: DECITABINE
     Indication: Acute myeloid leukaemia refractory
     Dosage: 7.5 MG/M2/ DOSE, QD (DAY 1 TO 5, DOSE LEVEL 1)
     Route: 065
  4. VORINOSTAT [Suspect]
     Active Substance: VORINOSTAT
     Indication: Acute myeloid leukaemia refractory
     Dosage: 180 MG/M2, QD (DAYS 1 TO 5)
     Route: 065
  5. CYTARABINE [Suspect]
     Active Substance: CYTARABINE
     Indication: Acute myeloid leukaemia refractory
     Dosage: 2000 MG/M2 (DAYS 6 TO 10)
     Route: 065

REACTIONS (4)
  - Acute myeloid leukaemia recurrent [Unknown]
  - Malignant neoplasm progression [Unknown]
  - Product use issue [Unknown]
  - Product use in unapproved indication [Unknown]
